FAERS Safety Report 8394899-4 (Version None)
Quarter: 2012Q2

REPORT INFORMATION
  Report Type: 
  Country: None (occurrence: None)
  Receive Date: 20120530
  Receipt Date: 20110412
  Transmission Date: 20120825
  Serious: No
  Sender: FDA-Public Use
  Company Number: US-GLAXOSMITHKLINE-A0923692A

PATIENT
  Age: 49 Year
  Sex: Female
  Weight: 71.7 kg

DRUGS (18)
  1. ZOVIRAX [Concomitant]
     Route: 061
  2. FLOLAN [Suspect]
     Indication: ESSENTIAL HYPERTENSION
     Dosage: 38NGKM SEE DOSAGE TEXT
     Route: 042
     Dates: start: 20100412
  3. FLUOXETINE [Concomitant]
     Dosage: 20MG PER DAY
     Route: 048
  4. ALPRAZOLAM [Concomitant]
     Dosage: .5MG AT NIGHT
  5. CEFUROXIME [Concomitant]
  6. POTASSIUM CHLORIDE [Concomitant]
     Dosage: 20MEQ PER DAY
     Route: 048
  7. LASIX [Concomitant]
     Dosage: 20MG PER DAY
     Route: 048
  8. COUMADIN [Concomitant]
  9. ALIGN [Concomitant]
     Route: 048
  10. VITAMIN C [Concomitant]
     Dosage: 500MG PER DAY
     Route: 048
  11. LETAIRIS [Concomitant]
     Dosage: 5MG PER DAY
     Route: 048
  12. ZYRTEC [Concomitant]
     Dosage: 10MG PER DAY
     Route: 048
  13. VERAMYST [Concomitant]
     Dosage: 2SPR PER DAY
     Route: 045
  14. LOMOTIL [Concomitant]
     Indication: DIARRHOEA
     Dosage: 1TAB AS REQUIRED
     Route: 048
  15. TYLENOL [Concomitant]
     Indication: PAIN
     Dosage: 500MG AS REQUIRED
     Route: 048
  16. SPIRONOLACTONE [Concomitant]
     Dosage: 60MG PER DAY
     Route: 048
  17. LOTEMAX [Concomitant]
     Route: 047
  18. UNSPECIFIED MEDICATION [Concomitant]

REACTIONS (2)
  - SINUSITIS [None]
  - PLATELET COUNT DECREASED [None]
